FAERS Safety Report 13745906 (Version 1)
Quarter: 2017Q3

REPORT INFORMATION
  Report Type: Spontaneous
  Country: US (occurrence: US)
  Receive Date: 20170712
  Receipt Date: 20170712
  Transmission Date: 20171127
  Serious: No
  Sender: FDA-Public Use
  Company Number: US-GLAXOSMITHKLINE-US2017GSK107096

PATIENT

DRUGS (1)
  1. VENTOLIN HFA [Suspect]
     Active Substance: ALBUTEROL SULFATE
     Indication: PRODUCT USED FOR UNKNOWN INDICATION

REACTIONS (7)
  - Device malfunction [Unknown]
  - Drug ineffective [Unknown]
  - Device use error [Unknown]
  - Incorrect dose administered [Unknown]
  - Underdose [Unknown]
  - Product cleaning inadequate [Unknown]
  - Wrong technique in product usage process [Unknown]
